APPROVED DRUG PRODUCT: SEIZALAM
Active Ingredient: MIDAZOLAM HYDROCHLORIDE
Strength: EQ 50MG BASE/10ML (EQ 5MG BASE/ML)
Dosage Form/Route: SOLUTION;INTRAMUSCULAR
Application: N209566 | Product #001
Applicant: MERIDIAN MEDICAL TECHNOLOGIES LLC
Approved: Sep 14, 2018 | RLD: Yes | RS: No | Type: DISCN